FAERS Safety Report 21224167 (Version 1)
Quarter: 2022Q3

REPORT INFORMATION
  Report Type: Report from Study
  Country: US (occurrence: US)
  Receive Date: 20220817
  Receipt Date: 20220817
  Transmission Date: 20221026
  Serious: Yes (Hospitalization)
  Sender: FDA-Public Use
  Company Number: US-BIOCRYST PHARMACEUTICALS, INC.-2022BCR00514

PATIENT

DRUGS (16)
  1. ORLADEYO [Suspect]
     Active Substance: BEROTRALSTAT HYDROCHLORIDE
     Indication: Hereditary angioedema
     Dosage: 150 MG, QD
     Route: 048
     Dates: start: 20210603
  2. MORNIFLUMATE [Concomitant]
     Active Substance: MORNIFLUMATE
     Dosage: UNK
  3. SINGULAIR [Concomitant]
     Active Substance: MONTELUKAST SODIUM
     Dosage: UNK
  4. EVOXAC [Concomitant]
     Active Substance: CEVIMELINE HYDROCHLORIDE
     Dosage: UNK
  5. DIPHENHYDRAMINE [Concomitant]
     Active Substance: DIPHENHYDRAMINE
     Dosage: UNK
  6. ZONEGRAN [Concomitant]
     Active Substance: ZONISAMIDE
     Dosage: UNK
  7. HYDROXYCHLOROQUINE [Concomitant]
     Active Substance: HYDROXYCHLOROQUINE
     Dosage: UNK
  8. GRALISE [Concomitant]
     Active Substance: GABAPENTIN
     Dosage: UNK
  9. ZOLPIDEM [Concomitant]
     Active Substance: ZOLPIDEM TARTRATE
     Dosage: UNK
  10. PROTONIX [Concomitant]
     Active Substance: PANTOPRAZOLE SODIUM
     Dosage: UNK
  11. ZYRTEC [Concomitant]
     Active Substance: CETIRIZINE HYDROCHLORIDE
     Dosage: UNK
  12. XELODA [Concomitant]
     Active Substance: CAPECITABINE
     Dosage: UNK
  13. DAPSONE [Concomitant]
     Active Substance: DAPSONE
     Dosage: UNK
  14. LINZESS [Concomitant]
     Active Substance: LINACLOTIDE
     Dosage: UNK
  15. METHOTREXATE [Concomitant]
     Active Substance: METHOTREXATE
     Dosage: UNK
  16. PREDNISONE [Concomitant]
     Active Substance: PREDNISONE
     Dosage: UNK

REACTIONS (7)
  - Blood test abnormal [Unknown]
  - Asthenia [Unknown]
  - Blister [Recovered/Resolved]
  - Abdominal pain [Unknown]
  - Flatulence [Unknown]
  - Rectal haemorrhage [Unknown]
  - Diarrhoea [Unknown]

NARRATIVE: CASE EVENT DATE: 20220701
